FAERS Safety Report 21350031 (Version 4)
Quarter: 2024Q1

REPORT INFORMATION
  Report Type: Spontaneous
  Country: US (occurrence: US)
  Receive Date: 20220919
  Receipt Date: 20240129
  Transmission Date: 20240410
  Serious: Yes (Hospitalization)
  Sender: FDA-Public Use
  Company Number: US-PFIZER INC-202201171027

PATIENT
  Age: 41 Year
  Sex: Male

DRUGS (10)
  1. BOSULIF [Suspect]
     Active Substance: BOSUTINIB MONOHYDRATE
     Indication: Chronic myeloid leukaemia
     Dosage: TAKE 1 TABLET DAILY
     Route: 048
     Dates: start: 20220906
  2. EXCEDRIN MIGRAINE [Concomitant]
     Active Substance: ACETAMINOPHEN\ASPIRIN\CAFFEINE
     Dosage: UNK
  3. IMODIUM A-D [Concomitant]
     Active Substance: LOPERAMIDE HYDROCHLORIDE
     Dosage: UNK
  4. MAGNESIUM OXIDE [Concomitant]
     Active Substance: MAGNESIUM OXIDE
     Dosage: UNK
  5. XYLOMETAZOLINE HYDROCHLORIDE [Concomitant]
     Active Substance: XYLOMETAZOLINE HYDROCHLORIDE
     Dosage: UNK
  6. THERAFLU [CAFFEINE;CODEINE PHOSPHATE;PARACETAMOL;PIPERYLONE MALEATE] [Concomitant]
     Dosage: UNK
  7. TUMS [Concomitant]
     Active Substance: CALCIUM CARBONATE
     Dosage: UNK
  8. TYLENOL [Concomitant]
     Active Substance: ACETAMINOPHEN
     Dosage: UNK
  9. VITAMIN C [Concomitant]
     Active Substance: ASCORBIC ACID
     Dosage: UNK
  10. SPRYCEL [Concomitant]
     Active Substance: DASATINIB
     Dosage: TAKE 1 TABLET DAILY
     Route: 048
     Dates: start: 20210304

REACTIONS (15)
  - Joint injury [Unknown]
  - Arthralgia [Not Recovered/Not Resolved]
  - Joint swelling [Not Recovered/Not Resolved]
  - Diarrhoea [Not Recovered/Not Resolved]
  - Abdominal discomfort [Not Recovered/Not Resolved]
  - Feeling abnormal [Unknown]
  - Illness [Not Recovered/Not Resolved]
  - Urine output decreased [Unknown]
  - Abdominal pain upper [Unknown]
  - Depressed mood [Unknown]
  - Nausea [Unknown]
  - Nasopharyngitis [Unknown]
  - Cough [Unknown]
  - Headache [Not Recovered/Not Resolved]
  - Respiratory disorder [Not Recovered/Not Resolved]

NARRATIVE: CASE EVENT DATE: 20220101
